FAERS Safety Report 7357933-6 (Version None)
Quarter: 2011Q1

REPORT INFORMATION
  Report Type: 
  Country: None (occurrence: None)
  Receive Date: 20110317
  Receipt Date: 20110315
  Transmission Date: 20110831
  Serious: Yes (Life-Threatening, Hospitalization)
  Sender: FDA-Public Use
  Company Number: BS-B.I. PHARMACEUTICALS,INC./RIDGEFIELD-2011-CN-00234CN

PATIENT
  Age: 64 Year
  Sex: Male

DRUGS (5)
  1. SOTALOL HYDROCHLORIDE [Concomitant]
  2. PREVACID [Concomitant]
  3. PRADAXA [Suspect]
     Indication: CEREBROVASCULAR ACCIDENT PROPHYLAXIS
     Dosage: 300 MG
     Route: 048
     Dates: start: 20110101
  4. PRADAXA [Suspect]
     Indication: ATRIAL FIBRILLATION
  5. ALVESCO [Concomitant]

REACTIONS (1)
  - DYSPNOEA [None]
